FAERS Safety Report 10524202 (Version 1)
Quarter: 2014Q4

REPORT INFORMATION
  Report Type: Spontaneous
  Country: KR (occurrence: KR)
  Receive Date: 20141017
  Receipt Date: 20141017
  Transmission Date: 20150528
  Serious: Yes (Death)
  Sender: FDA-Public Use
  Company Number: KR-JNJFOC-20141006219

PATIENT
  Age: 71 Year
  Sex: Male

DRUGS (6)
  1. XARELTO [Suspect]
     Active Substance: RIVAROXABAN
     Indication: PULMONARY EMBOLISM
     Route: 048
  2. XARELTO [Suspect]
     Active Substance: RIVAROXABAN
     Indication: EMBOLISM VENOUS
     Route: 048
  3. CURAN [Concomitant]
     Route: 065
  4. KLACID (CLARITHROMYCIN) [Concomitant]
     Active Substance: CLARITHROMYCIN
     Indication: ANTIBIOTIC THERAPY
     Route: 065
  5. SUPRAX [Concomitant]
     Active Substance: CEFIXIME
     Indication: ANTIBIOTIC THERAPY
     Route: 065
  6. ERDOSTIN [Concomitant]
     Indication: ANTITUSSIVE THERAPY
     Route: 065

REACTIONS (1)
  - Interstitial lung disease [Fatal]
